FAERS Safety Report 18310838 (Version 1)
Quarter: 2020Q3

REPORT INFORMATION
  Report Type: Spontaneous
  Country: BR (occurrence: BR)
  Receive Date: 20200925
  Receipt Date: 20200925
  Transmission Date: 20201103
  Serious: Yes (Hospitalization, Other)
  Sender: FDA-Public Use
  Company Number: BR-ROCHE-2684203

PATIENT
  Sex: Female

DRUGS (1)
  1. OMALIZUMAB. [Suspect]
     Active Substance: OMALIZUMAB
     Indication: PRODUCT USED FOR UNKNOWN INDICATION
     Route: 065

REACTIONS (7)
  - Urinary tract infection [Unknown]
  - Hypoalbuminaemia [Unknown]
  - Condition aggravated [Unknown]
  - Skin exfoliation [Unknown]
  - Malabsorption [Unknown]
  - Generalised oedema [Unknown]
  - Thyroxine increased [Unknown]
